FAERS Safety Report 4927529-1 (Version None)
Quarter: 2006Q1

REPORT INFORMATION
  Report Type: 
  Country: None (occurrence: None)
  Receive Date: 20060228
  Receipt Date: 20050414
  Transmission Date: 20060701
  Serious: Yes (Hospitalization)
  Sender: FDA-Public Use
  Company Number: US-MERCK-0504USA02527

PATIENT
  Age: 68 Year
  Sex: Male
  Weight: 71 kg

DRUGS (11)
  1. ZYPREXA [Concomitant]
     Route: 065
  2. COUMADIN [Concomitant]
     Route: 065
  3. VOSPIRE [Concomitant]
     Route: 065
  4. NORVASC [Concomitant]
     Route: 065
  5. BACTRIM [Concomitant]
     Route: 065
  6. PAXIL [Concomitant]
     Route: 065
  7. SINGULAIR [Concomitant]
     Route: 065
  8. VIOXX [Suspect]
     Indication: BACK PAIN
     Route: 048
     Dates: start: 20000101, end: 20041026
  9. VIOXX [Suspect]
     Indication: ARTHRALGIA
     Route: 048
     Dates: start: 20000101, end: 20041026
  10. POTASSIUM CHLORIDE [Concomitant]
     Route: 065
  11. CELEBREX [Concomitant]
     Route: 065

REACTIONS (12)
  - ABDOMINAL PAIN [None]
  - ANGIOPLASTY [None]
  - GROIN INFECTION [None]
  - GROIN PAIN [None]
  - HAEMATOMA [None]
  - INFARCTION [None]
  - INJURY [None]
  - LUNG DISORDER [None]
  - POST PROCEDURAL COMPLICATION [None]
  - VEIN DISORDER [None]
  - VENOUS OCCLUSION [None]
  - VENTRICULOGRAM [None]
